FAERS Safety Report 8531100-2 (Version None)
Quarter: 2012Q3

REPORT INFORMATION
  Report Type: 
  Country: None (occurrence: None)
  Receive Date: 20120710
  Receipt Date: 20120627
  Transmission Date: 20120928
  Serious: Yes (Other)
  Sender: FDA-Public Use
  Company Number: 2012P1040788

PATIENT
  Age: 59 Year
  Sex: Female
  Weight: 38.5557 kg

DRUGS (10)
  1. OXYCODONE HCL [Concomitant]
  2. FENTANYL-75 [Suspect]
  3. FENTANYL-75 [Suspect]
     Indication: LUNG NEOPLASM MALIGNANT
     Dosage: 1 PATCH;Q3D
     Route: 062
     Dates: start: 20120401
  4. FENTANYL-75 [Suspect]
     Indication: CANCER PAIN
     Dosage: 1 PATCH;Q3D
     Route: 062
     Dates: start: 20120401
  5. FENTANYL-75 [Suspect]
     Indication: LUNG NEOPLASM MALIGNANT
     Dosage: 1 PATCH;Q3D
     Route: 062
     Dates: end: 20120301
  6. FENTANYL-75 [Suspect]
     Indication: CANCER PAIN
     Dosage: 1 PATCH;Q3D
     Route: 062
     Dates: end: 20120301
  7. FENTANYL-100 [Suspect]
     Indication: CANCER PAIN
     Dosage: 1 PATCH;Q3D
     Route: 062
     Dates: start: 20120301
  8. FENTANYL-100 [Suspect]
     Indication: LUNG NEOPLASM MALIGNANT
     Dosage: 1 PATCH;Q3D
     Route: 062
     Dates: start: 20120301
  9. FENTANYL-50 [Suspect]
     Indication: LUNG NEOPLASM MALIGNANT
     Dosage: 1 PATCH;Q3D
     Route: 062
     Dates: start: 20120112
  10. FENTANYL-50 [Suspect]
     Indication: CANCER PAIN
     Dosage: 1 PATCH;Q3D
     Route: 062
     Dates: start: 20120112

REACTIONS (1)
  - INADEQUATE ANALGESIA [None]
